FAERS Safety Report 11135478 (Version 1)
Quarter: 2015Q2

REPORT INFORMATION
  Report Type: Spontaneous
  Country: US (occurrence: None)
  Receive Date: 20150522
  Receipt Date: 20150522
  Transmission Date: 20150821
  Serious: Yes (Disabling)
  Sender: FDA-Public Use
  Company Number: None

PATIENT
  Age: 53 Year
  Sex: Female
  Weight: 58.06 kg

DRUGS (10)
  1. PRAVASTATIN [Concomitant]
     Active Substance: PRAVASTATIN\PRAVASTATIN SODIUM
  2. DULOXETINE HCL [Suspect]
     Active Substance: DULOXETINE HYDROCHLORIDE
     Indication: DEPRESSION
     Route: 048
  3. NORVASC [Concomitant]
     Active Substance: AMLODIPINE BESYLATE
  4. OMEGA FISH OIL [Concomitant]
     Active Substance: FISH OIL\OMEGA-3 FATTY ACIDS
  5. MULTI VITAMIN [Concomitant]
     Active Substance: VITAMINS
  6. SINGULAIR [Concomitant]
     Active Substance: MONTELUKAST SODIUM
  7. ATENOLOL. [Concomitant]
     Active Substance: ATENOLOL
  8. FIBER CAPSULES [Concomitant]
  9. CYMBALTA [Concomitant]
     Active Substance: DULOXETINE HYDROCHLORIDE
  10. OMEPRAZOLE. [Concomitant]
     Active Substance: OMEPRAZOLE

REACTIONS (17)
  - Tinnitus [None]
  - Blood pressure increased [None]
  - Product quality issue [None]
  - Ear discomfort [None]
  - Tremor [None]
  - Peripheral swelling [None]
  - Heart rate increased [None]
  - Nightmare [None]
  - Thinking abnormal [None]
  - General physical health deterioration [None]
  - Feeling abnormal [None]
  - Weight decreased [None]
  - Emotional distress [None]
  - Insomnia [None]
  - Product substitution issue [None]
  - Ear infection [None]
  - Serotonin syndrome [None]

NARRATIVE: CASE EVENT DATE: 20150410
